FAERS Safety Report 9233626 (Version 1)
Quarter: 2013Q2

REPORT INFORMATION
  Report Type: Spontaneous
  Country: IN (occurrence: None)
  Receive Date: 20130412
  Receipt Date: 20130412
  Transmission Date: 20140414
  Serious: No
  Sender: FDA-Public Use
  Company Number: NPIL/ISO/H/2013/48

PATIENT
  Age: 8 Year
  Sex: Male
  Weight: 25 kg

DRUGS (3)
  1. ISOFLURANE [Suspect]
     Indication: CRANIOTOMY
     Route: 055
  2. PROPOFOL [Concomitant]
  3. VECURONIUM [Concomitant]

REACTIONS (3)
  - Obstructive airways disorder [None]
  - Bronchial secretion retention [None]
  - End-tidal CO2 increased [None]
